FAERS Safety Report 8380336-2 (Version None)
Quarter: 2012Q2

REPORT INFORMATION
  Report Type: 
  Country: None (occurrence: None)
  Receive Date: 20120523
  Receipt Date: 20120511
  Transmission Date: 20120825
  Serious: Yes (Hospitalization)
  Sender: FDA-Public Use
  Company Number: JP-UCBSA-056521

PATIENT
  Age: 50 Year
  Sex: Female
  Weight: 52 kg

DRUGS (2)
  1. XYZAL [Suspect]
     Indication: RHINITIS ALLERGIC
     Route: 048
     Dates: start: 20120301, end: 20120422
  2. XYZAL [Suspect]
     Indication: SEASONAL ALLERGY
     Route: 048
     Dates: start: 20120301, end: 20120422

REACTIONS (1)
  - ANAPHYLACTIC SHOCK [None]
